FAERS Safety Report 11086552 (Version 1)
Quarter: 2015Q2

REPORT INFORMATION
  Report Type: Spontaneous
  Country: None (occurrence: None)
  Receive Date: 20150501
  Receipt Date: 20150501
  Transmission Date: 20150821
  Serious: No
  Sender: FDA-Public Use
  Company Number: None

PATIENT
  Age: 58 Year
  Sex: Male
  Weight: 109.1 kg

DRUGS (1)
  1. TRANYLCYPROMINE 10 MG TABLETS RISING [Suspect]
     Active Substance: TRANYLCYPROMINE
     Indication: DEPRESSION
     Dosage: 20 TID PO
     Route: 048
     Dates: start: 20150414, end: 20150418

REACTIONS (3)
  - Depression [None]
  - Hot flush [None]
  - Vision blurred [None]

NARRATIVE: CASE EVENT DATE: 20150419
